FAERS Safety Report 24018060 (Version 2)
Quarter: 2024Q4

REPORT INFORMATION
  Report Type: Spontaneous
  Country: GB (occurrence: GB)
  Receive Date: 20240627
  Receipt Date: 20241030
  Transmission Date: 20250115
  Serious: Yes (Other)
  Sender: AUROBINDO
  Company Number: GB-MHRA-MED-202406151733160440-FGYHL

PATIENT
  Age: 74 Day
  Sex: Female
  Weight: 56 kg

DRUGS (2)
  1. METRONIDAZOLE [Suspect]
     Active Substance: METRONIDAZOLE
     Indication: Alveolar osteitis
     Dosage: 200 MILLIGRAM, 3 TIMES A DAY (200MG 3X PER DAY)
     Route: 065
     Dates: start: 20240613
  2. METRONIDAZOLE\NYSTATIN [Suspect]
     Active Substance: METRONIDAZOLE\NYSTATIN
     Indication: Alveolar osteitis
     Dosage: 200 MILLIGRAM, 3 TIMES A DAY
     Route: 065
     Dates: start: 20240613

REACTIONS (2)
  - Photosensitivity reaction [Recovering/Resolving]
  - Erythema [Unknown]

NARRATIVE: CASE EVENT DATE: 20240615
